FAERS Safety Report 6417855-1 (Version None)
Quarter: 2009Q4

REPORT INFORMATION
  Report Type: 
  Country: None (occurrence: None)
  Receive Date: 20091028
  Receipt Date: 20091026
  Transmission Date: 20100525
  Serious: Yes (Life-Threatening, Hospitalization, Congenital Anomaly)
  Sender: FDA-Public Use
  Company Number: A0687291A

PATIENT
  Sex: Female
  Weight: 2.4 kg

DRUGS (4)
  1. PAROXETINE HCL [Suspect]
     Indication: FATIGUE
     Dosage: 40MG PER DAY
     Dates: start: 20030808, end: 20061013
  2. PAXIL [Suspect]
     Indication: FATIGUE
     Dosage: 20MG PER DAY
     Dates: start: 19990701, end: 20030414
  3. VITAMIN TAB [Concomitant]
  4. ACETAMINOPHEN [Concomitant]

REACTIONS (38)
  - ASTHMA [None]
  - ATRIAL SEPTAL DEFECT [None]
  - AVERSION [None]
  - BRADYCARDIA [None]
  - CARDIAC DISORDER [None]
  - CARDIAC FAILURE CONGESTIVE [None]
  - CARDIAC MURMUR [None]
  - CEREBRAL HAEMORRHAGE [None]
  - CLUBBING [None]
  - COARCTATION OF THE AORTA [None]
  - COGNITIVE DISORDER [None]
  - COLLAPSE OF LUNG [None]
  - CONGENITAL AORTIC VALVE STENOSIS [None]
  - CONGENITAL MITRAL VALVE STENOSIS [None]
  - CONVULSION [None]
  - CYANOSIS [None]
  - DEAFNESS [None]
  - DEVELOPMENTAL DELAY [None]
  - DRUG EXPOSURE DURING PREGNANCY [None]
  - EMOTIONAL DISORDER [None]
  - FAILURE TO THRIVE [None]
  - FOETAL GROWTH RETARDATION [None]
  - FOOD INTOLERANCE [None]
  - HEART DISEASE CONGENITAL [None]
  - HYPOPLASTIC LEFT HEART SYNDROME [None]
  - HYPOXIA [None]
  - ILL-DEFINED DISORDER [None]
  - OEDEMA PERIPHERAL [None]
  - PNEUMOTHORAX [None]
  - PULMONARY ARTERY STENOSIS CONGENITAL [None]
  - RESPIRATORY DISTRESS [None]
  - RESPIRATORY FAILURE [None]
  - SOCIAL PROBLEM [None]
  - STAPHYLOCOCCAL INFECTION [None]
  - TRICUSPID VALVE INCOMPETENCE [None]
  - TRICUSPID VALVE STENOSIS [None]
  - VENTRICULAR SEPTAL DEFECT [None]
  - WITHDRAWAL SYNDROME [None]
